FAERS Safety Report 22307302 (Version 1)
Quarter: 2023Q2

REPORT INFORMATION
  Report Type: Spontaneous
  Country: US (occurrence: US)
  Receive Date: 20230511
  Receipt Date: 20230511
  Transmission Date: 20230722
  Serious: No
  Sender: FDA-Public Use
  Company Number: US-Amarin Pharma, Inc.-2022AMR001346

PATIENT

DRUGS (2)
  1. VASCEPA [Suspect]
     Active Substance: ICOSAPENT ETHYL
     Indication: Product used for unknown indication
     Dosage: 2 CAPSULES IN AM AND 2 CAPSULES IN PM
     Route: 048
     Dates: start: 2018
  2. REPATHA [Concomitant]
     Active Substance: EVOLOCUMAB
     Indication: Low density lipoprotein increased
     Dates: start: 2018

REACTIONS (5)
  - Aortic valve replacement [Recovered/Resolved]
  - Poor quality product administered [Recovered/Resolved]
  - Product leakage [Unknown]
  - Product odour abnormal [Unknown]
  - Product physical issue [Unknown]

NARRATIVE: CASE EVENT DATE: 20180101
